FAERS Safety Report 6187780-2 (Version None)
Quarter: 2009Q2

REPORT INFORMATION
  Report Type: 
  Country: None (occurrence: None)
  Receive Date: 20090511
  Receipt Date: 20090511
  Transmission Date: 20091009
  Serious: Yes (Other)
  Sender: FDA-Public Use
  Company Number: None

PATIENT
  Age: 56 Year
  Sex: Female
  Weight: 72.5755 kg

DRUGS (8)
  1. NAMENDA [Suspect]
     Indication: FALL
     Dosage: 10 MG 1ST WEEK 2 NEXT ORAL
     Route: 048
     Dates: start: 20090312
  2. NAMENDA [Suspect]
     Indication: HEPATITIS C
     Dosage: 10 MG 1ST WEEK 2 NEXT ORAL
     Route: 048
     Dates: start: 20090312
  3. NAMENDA [Suspect]
     Indication: HIV INFECTION
     Dosage: 10 MG 1ST WEEK 2 NEXT ORAL
     Route: 048
     Dates: start: 20090312
  4. NAMENDA [Suspect]
     Indication: MEMORY IMPAIRMENT
     Dosage: 10 MG 1ST WEEK 2 NEXT ORAL
     Route: 048
     Dates: start: 20090312
  5. NAMENDA [Suspect]
     Indication: FALL
     Dosage: 10 MG 1ST WEEK 2 NEXT ORAL
     Route: 048
     Dates: start: 20090322
  6. NAMENDA [Suspect]
     Indication: HEPATITIS C
     Dosage: 10 MG 1ST WEEK 2 NEXT ORAL
     Route: 048
     Dates: start: 20090322
  7. NAMENDA [Suspect]
     Indication: HIV INFECTION
     Dosage: 10 MG 1ST WEEK 2 NEXT ORAL
     Route: 048
     Dates: start: 20090322
  8. NAMENDA [Suspect]
     Indication: MEMORY IMPAIRMENT
     Dosage: 10 MG 1ST WEEK 2 NEXT ORAL
     Route: 048
     Dates: start: 20090322

REACTIONS (4)
  - BELLIGERENCE [None]
  - COPROLALIA [None]
  - HOMICIDAL IDEATION [None]
  - SCREAMING [None]
